FAERS Safety Report 7089257-9 (Version None)
Quarter: 2010Q4

REPORT INFORMATION
  Report Type: 
  Country: None (occurrence: None)
  Receive Date: 20101108
  Receipt Date: 20101103
  Transmission Date: 20110411
  Serious: Yes (Hospitalization)
  Sender: FDA-Public Use
  Company Number: CH-MERCK-1011USA00396

PATIENT
  Age: 24 Year
  Sex: Female

DRUGS (5)
  1. ISENTRESS [Suspect]
     Indication: HIV INFECTION
     Route: 048
     Dates: start: 20090421, end: 20090526
  2. PREZISTA [Suspect]
     Indication: HIV INFECTION
     Route: 048
     Dates: start: 20090421, end: 20090526
  3. NORVIR [Suspect]
     Indication: HIV INFECTION
     Route: 048
     Dates: start: 20090421, end: 20090526
  4. INTELENCE [Suspect]
     Indication: HIV INFECTION
     Route: 048
     Dates: start: 20090421, end: 20090526
  5. AUGMENTIN '125' [Suspect]
     Indication: PYREXIA
     Route: 048
     Dates: start: 20090525, end: 20090526

REACTIONS (1)
  - HEPATITIS TOXIC [None]
